FAERS Safety Report 16425764 (Version 4)
Quarter: 2019Q4

REPORT INFORMATION
  Report Type: Spontaneous
  Country: US (occurrence: US)
  Receive Date: 20190613
  Receipt Date: 20191121
  Transmission Date: 20200122
  Serious: Yes (Hospitalization, Other)
  Sender: FDA-Public Use
  Company Number: US-PFIZER INC-2019246824

PATIENT
  Age: 83 Year
  Sex: Male
  Weight: 75.3 kg

DRUGS (14)
  1. MAGNESIUM OXIDE. [Concomitant]
     Active Substance: MAGNESIUM OXIDE
     Indication: CARDIAC DISORDER
     Dosage: 400 MG, 2X/DAY [2XPD (PER DAY)]
  2. PROPRANOLOL [Concomitant]
     Active Substance: PROPRANOLOL HYDROCHLORIDE
     Indication: TREMOR
  3. PROPRANOLOL [Concomitant]
     Active Substance: PROPRANOLOL HYDROCHLORIDE
     Indication: TREMOR
  4. CUMADIN [Concomitant]
     Active Substance: WARFARIN SODIUM
     Indication: ANTICOAGULANT THERAPY
     Dosage: 1 TO 1 AND 1/2 PD (PER DAY)
  5. AVODART [Concomitant]
     Active Substance: DUTASTERIDE
     Indication: PROSTATOMEGALY
     Dosage: 0.5 MG, 1X/DAY [1 PD (PER DAY)]
     Dates: start: 20130129
  6. CEPHALEXIN [CEFALEXIN] [Concomitant]
     Active Substance: CEPHALEXIN
     Dosage: 250 MG, 1X/DAY
     Dates: start: 20190802
  7. TIKOSYN [Suspect]
     Active Substance: DOFETILIDE
     Indication: ARRHYTHMIA
     Dosage: 1 DF, 2X/DAY (TWO CAPSULES A DAY (12 HOURS APART))
     Route: 048
     Dates: start: 20190516
  8. TIKOSYN [Suspect]
     Active Substance: DOFETILIDE
     Indication: ATRIAL FIBRILLATION
     Dosage: 500 UG, 2X/DAY (12 HOURS APART)
     Dates: start: 20190516
  9. CEPHALEXIN [CEFALEXIN] [Concomitant]
     Active Substance: CEPHALEXIN
     Indication: URINARY TRACT INFECTION
     Dosage: 1000 MG, WEEKLY [1 WK CEPHELEXIN THEN 30 DAYS]
  10. PROPRANOLOL [Concomitant]
     Active Substance: PROPRANOLOL HYDROCHLORIDE
     Indication: HEART RATE ABNORMAL
     Dosage: 20 MG, 1X/DAY [1XPD (PER DAY)
  11. ZOCOR [Concomitant]
     Active Substance: SIMVASTATIN
     Indication: HYPERCHOLESTEROLAEMIA
     Dosage: 40 MG, 1X/DAY [1 PD (PER DAY)]
  12. PROPRANOLOL [Concomitant]
     Active Substance: PROPRANOLOL HYDROCHLORIDE
     Indication: HEART RATE ABNORMAL
     Dosage: 60 MG, 1X/DAY [1XPD (PER DAY)]
     Dates: start: 20190819
  13. VALIUM [Concomitant]
     Active Substance: DIAZEPAM
     Indication: SLEEP DISORDER
     Dosage: 2 MG, 1X/DAY [1 PD (PER DAY) AT NIGHT]
  14. NASACORT [Concomitant]
     Active Substance: TRIAMCINOLONE ACETONIDE
     Dosage: 25 MCG PER SPRAY

REACTIONS (7)
  - Condition aggravated [Unknown]
  - Drug ineffective [Unknown]
  - Vestibular disorder [Recovering/Resolving]
  - Atrial fibrillation [Unknown]
  - Heart rate irregular [Not Recovered/Not Resolved]
  - Balance disorder [Unknown]
  - Dizziness [Unknown]
